FAERS Safety Report 8366153-8 (Version None)
Quarter: 2012Q2

REPORT INFORMATION
  Report Type: 
  Country: None (occurrence: None)
  Receive Date: 20120516
  Receipt Date: 20120516
  Transmission Date: 20120825
  Serious: No
  Sender: FDA-Public Use
  Company Number: None

PATIENT
  Sex: Female
  Weight: 115.3044 kg

DRUGS (2)
  1. SUBUTEX [Suspect]
     Indication: BREAST FEEDING
     Dosage: 8MG 1 1/2 DAILY S.L.
     Route: 060
     Dates: start: 20111011
  2. SUBUTEX [Suspect]
     Indication: SUBSTANCE ABUSE
     Dosage: 8MG 1 1/2 DAILY S.L.
     Route: 060
     Dates: start: 20111011

REACTIONS (1)
  - MATERNAL EXPOSURE DURING PREGNANCY [None]
